FAERS Safety Report 10473484 (Version 9)
Quarter: 2015Q2

REPORT INFORMATION
  Report Type: Report from Study
  Country: AU (occurrence: AU)
  Receive Date: 20140924
  Receipt Date: 20150409
  Transmission Date: 20150821
  Serious: Yes (Hospitalization, Other)
  Sender: FDA-Public Use
  Company Number: PHHY2014AU118683

PATIENT
  Age: 28 Year
  Sex: Female
  Weight: 67.3 kg

DRUGS (9)
  1. CLOZARIL [Suspect]
     Active Substance: CLOZAPINE
     Dosage: 325 MG (50 MG IN THE MORNING AND 275 MG AT NIGHT)
     Route: 048
  2. SENNA [Concomitant]
     Active Substance: SENNA LEAF\SENNOSIDES\SENNOSIDES A AND B
     Indication: PRODUCT USED FOR UNKNOWN INDICATION
     Dosage: 50 MG, QD (IN THE MORNING)
     Route: 065
  3. CLOZARIL [Suspect]
     Active Substance: CLOZAPINE
     Dosage: 275 MG DAILY
     Route: 048
  4. TEMAZEPAM. [Concomitant]
     Active Substance: TEMAZEPAM
     Indication: PRODUCT USED FOR UNKNOWN INDICATION
     Dosage: 5 MG, QD (AT NIGHT)
     Route: 048
  5. OSTEOVIT D [Concomitant]
     Indication: PRODUCT USED FOR UNKNOWN INDICATION
     Dosage: 25 UG, QD (IN THE MORNIG)
     Route: 048
  6. SODIUM VALPROATE [Concomitant]
     Active Substance: VALPROATE SODIUM
     Indication: PRODUCT USED FOR UNKNOWN INDICATION
     Dosage: 400 MG, BID
     Route: 048
  7. COLOXYL [Concomitant]
     Active Substance: DOCUSATE SODIUM
     Indication: PRODUCT USED FOR UNKNOWN INDICATION
     Dosage: 50 MG, UNK
     Route: 065
  8. CLOZARIL [Suspect]
     Active Substance: CLOZAPINE
     Indication: SCHIZOPHRENIA
     Dosage: 375 MG
     Route: 048
     Dates: start: 201007
  9. CLOZARIL [Suspect]
     Active Substance: CLOZAPINE
     Dosage: UNK
     Route: 048
     Dates: start: 20150107, end: 20150109

REACTIONS (31)
  - Pericardial effusion [Unknown]
  - Hallucination [Unknown]
  - Delusional disorder, unspecified type [Unknown]
  - Soliloquy [Unknown]
  - Irritability [Unknown]
  - Aggression [Unknown]
  - Judgement impaired [Unknown]
  - Mental impairment [Unknown]
  - Pericarditis [Unknown]
  - Ear infection [Unknown]
  - Right ventricular systolic pressure increased [Unknown]
  - Right ventricular hypertrophy [Unknown]
  - Ventricular hypokinesia [Unknown]
  - Psychotic disorder [Not Recovered/Not Resolved]
  - Pituitary tumour benign [Unknown]
  - Mitral valve prolapse [Unknown]
  - Ear swelling [Unknown]
  - Dilatation ventricular [Unknown]
  - Ventricular dyskinesia [Unknown]
  - Ventricular hypertrophy [Unknown]
  - Ejection fraction decreased [Unknown]
  - Haemoglobin decreased [Not Recovered/Not Resolved]
  - Mitral valve incompetence [Unknown]
  - Hostility [Unknown]
  - Hypothyroidism [Unknown]
  - Somnolence [Unknown]
  - Patent ductus arteriosus [Unknown]
  - Tricuspid valve incompetence [Unknown]
  - Pulmonary valve incompetence [Unknown]
  - Self injurious behaviour [Unknown]
  - Orthostatic hypotension [Unknown]

NARRATIVE: CASE EVENT DATE: 201010
